FAERS Safety Report 8192896-5 (Version None)
Quarter: 2012Q1

REPORT INFORMATION
  Report Type: 
  Country: None (occurrence: None)
  Receive Date: 20120308
  Receipt Date: 20120228
  Transmission Date: 20120608
  Serious: Yes (Hospitalization)
  Sender: FDA-Public Use
  Company Number: FR-TEVA-325963ISR

PATIENT
  Sex: Female

DRUGS (6)
  1. METHOTREXATE [Suspect]
     Dosage: 13325 MILLIGRAM;
     Route: 042
     Dates: start: 20111112, end: 20111112
  2. IFOSFAMIDE [Concomitant]
     Indication: OSTEOSARCOMA METASTATIC
     Dosage: 3320 MILLIGRAM;
     Route: 042
     Dates: start: 20111129, end: 20111201
  3. METHOTREXATE [Suspect]
     Indication: OSTEOSARCOMA METASTATIC
     Dosage: 13325 MILLIGRAM;
     Route: 042
     Dates: start: 20111220, end: 20111220
  4. ETOPOSIDE [Concomitant]
     Indication: OSTEOSARCOMA METASTATIC
     Dosage: 84 MILLIGRAM;
     Route: 042
     Dates: start: 20111129, end: 20111201
  5. METHOTREXATE [Suspect]
     Dosage: 13325 MILLIGRAM;
     Route: 042
     Dates: start: 20111105, end: 20111105
  6. METHOTREXATE [Suspect]
     Dosage: 13325 MILLIGRAM;
     Route: 042
     Dates: start: 20111121, end: 20111121

REACTIONS (1)
  - COLITIS [None]
